FAERS Safety Report 21310358 (Version 1)
Quarter: 2022Q3

REPORT INFORMATION
  Report Type: Report from Study
  Country: US (occurrence: US)
  Receive Date: 20220909
  Receipt Date: 20220909
  Transmission Date: 20221026
  Serious: No
  Sender: FDA-Public Use
  Company Number: US-NOVARTISTESTPH-NVSC2022US203135

PATIENT
  Sex: Female

DRUGS (3)
  1. COSENTYX [Suspect]
     Active Substance: SECUKINUMAB
     Indication: Psoriasis
     Dosage: UNK UNK, QMO
     Route: 058
  2. COSENTYX [Suspect]
     Active Substance: SECUKINUMAB
     Indication: Psoriatic arthropathy
     Dosage: UNK, (LOADING DOSES)
     Route: 065
     Dates: start: 20220620
  3. COSENTYX [Suspect]
     Active Substance: SECUKINUMAB
     Dosage: UNK, (FIRST MAINTENANCE DOSE)
     Route: 065
     Dates: end: 20220816

REACTIONS (1)
  - Psoriasis [Unknown]
